FAERS Safety Report 16333400 (Version 1)
Quarter: 2019Q2

REPORT INFORMATION
  Report Type: Spontaneous
  Country: US (occurrence: US)
  Receive Date: 20190520
  Receipt Date: 20190520
  Transmission Date: 20190711
  Serious: No
  Sender: FDA-Public Use
  Company Number: US-VANDA PHARMACEUTICALS, INC-2018ILOUS001721

PATIENT
  Age: 28 Year
  Sex: Female
  Weight: 72.56 kg

DRUGS (9)
  1. EFFEXOR XR [Concomitant]
     Active Substance: VENLAFAXINE HYDROCHLORIDE
     Indication: PRODUCT USED FOR UNKNOWN INDICATION
     Dosage: 75 MG (2- 37.5 MG) WEANING OFF
  2. FANAPT [Suspect]
     Active Substance: ILOPERIDONE
     Dosage: 8 MG,  QHS X 1 WEEK
     Dates: start: 201711, end: 20171121
  3. REXULTI [Concomitant]
     Active Substance: BREXPIPRAZOLE
     Indication: PRODUCT USED FOR UNKNOWN INDICATION
     Dosage: 4 MG, UNK
     Dates: start: 201707
  4. FANAPT [Suspect]
     Active Substance: ILOPERIDONE
     Indication: SCHIZOAFFECTIVE DISORDER
     Dosage: 2 MG, UNK
     Dates: start: 20171030, end: 20171030
  5. FANAPT [Suspect]
     Active Substance: ILOPERIDONE
     Dosage: 6 MG, X 1 WEEK
     Dates: start: 201711, end: 201711
  6. FANAPT [Suspect]
     Active Substance: ILOPERIDONE
     Dosage: 4 MG, X 1 WEEK
     Dates: start: 20171031, end: 201711
  7. LITHIUM. [Concomitant]
     Active Substance: LITHIUM
     Indication: PRODUCT USED FOR UNKNOWN INDICATION
     Dosage: 300 MG, Q AM,
     Dates: start: 201709
  8. LITHIUM. [Concomitant]
     Active Substance: LITHIUM
     Dosage: 900 MG, Q PM,
     Dates: start: 201709
  9. LAMOTRIGINE. [Concomitant]
     Active Substance: LAMOTRIGINE
     Indication: PRODUCT USED FOR UNKNOWN INDICATION
     Dosage: 200 MG, UNK
     Dates: start: 2014

REACTIONS (1)
  - Upper respiratory tract congestion [Recovered/Resolved]

NARRATIVE: CASE EVENT DATE: 20171030
